FAERS Safety Report 4675366-8 (Version None)
Quarter: 2005Q2

REPORT INFORMATION
  Report Type: 
  Country: None (occurrence: None)
  Receive Date: 20050527
  Receipt Date: 20050209
  Transmission Date: 20051028
  Serious: No
  Sender: FDA-Public Use
  Company Number: US-BRISTOL-MYERS SQUIBB COMPANY-12855037

PATIENT
  Age: 18 Year
  Sex: Male

DRUGS (4)
  1. ABILIFY [Suspect]
     Indication: PSYCHOTIC DISORDER
  2. DEPAKOTE ER [Concomitant]
  3. COGENTIN [Concomitant]
  4. BACTRIM [Concomitant]

REACTIONS (2)
  - LEUKOPENIA [None]
  - NAUSEA [None]
